FAERS Safety Report 24778876 (Version 3)
Quarter: 2025Q1

REPORT INFORMATION
  Report Type: Spontaneous
  Country: GB (occurrence: GB)
  Receive Date: 20241226
  Receipt Date: 20250115
  Transmission Date: 20250408
  Serious: Yes (Other)
  Sender: Vantive US Healthcare
  Company Number: GB-VANTIVE-2024VAN021948

PATIENT
  Age: 71 Year
  Sex: Male
  Weight: 90 kg

DRUGS (1)
  1. CALCIUM CL\DEXTROSE\MAGNESIUM CL\SODIUM BICAR\SODIUM CL\SODIUM LACT [Suspect]
     Active Substance: CALCIUM CHLORIDE\DEXTROSE MONOHYDRATE\MAGNESIUM CHLORIDE\SODIUM BICARBONATE\SODIUM CHLORIDE\SODIUM L
     Indication: Peritoneal dialysis
     Route: 033
     Dates: start: 20241218

REACTIONS (4)
  - Peritonitis bacterial [Recovering/Resolving]
  - Peritoneal cloudy effluent [Recovering/Resolving]
  - Product leakage [Unknown]
  - Product contamination [Unknown]

NARRATIVE: CASE EVENT DATE: 20241218
